FAERS Safety Report 9070318 (Version 2)
Quarter: 2013Q2

REPORT INFORMATION
  Report Type: Spontaneous
  Country: US (occurrence: US)
  Receive Date: 20130215
  Receipt Date: 20130516
  Transmission Date: 20140414
  Serious: Yes (Other)
  Sender: FDA-Public Use
  Company Number: US-BAYER-2013-017862

PATIENT
  Age: 25 Year
  Sex: Female
  Weight: 77.1 kg

DRUGS (17)
  1. YASMIN [Suspect]
     Dosage: QD
     Dates: start: 2007, end: 2008
  2. YAZ [Suspect]
     Dosage: UNK
     Dates: start: 2007, end: 2008
  3. OCELLA [Suspect]
     Dosage: UNK
     Dates: start: 2007, end: 2008
  4. ARMOUR THYROID [Concomitant]
     Dosage: 60 MG, DAILY
  5. FLONASE [Concomitant]
     Dosage: DAILY
  6. IMITREX [Concomitant]
     Dosage: 100 MG, PRN
  7. SPIRONOLACTONE [Concomitant]
     Dosage: 50 MG, DAILY
  8. XYZAL [Concomitant]
     Dosage: 5 MG, DAILY
  9. NEXIUM [Concomitant]
     Dosage: 40 MG, TID
  10. CARAFATE [Concomitant]
     Dosage: 1 GM / 10 ML
  11. PRISTIQ [Concomitant]
     Indication: DEPRESSION
     Dosage: 50 MG, DAILY
  12. AMBIEN [Concomitant]
     Dosage: 10 MG, HS
  13. BUDEPRION [Concomitant]
     Dosage: 300 MG, UNK
  14. CYCLOBENZAPRINE [Concomitant]
     Dosage: 10 MG, UNK
  15. NAPROXEN [Concomitant]
     Dosage: 500 MG, UNK
  16. SINGULAIR [Concomitant]
     Dosage: 10 MG, DAILY
  17. TRAMADOL [Concomitant]
     Dosage: 50 MG, UNK

REACTIONS (11)
  - Pulmonary embolism [None]
  - Injury [None]
  - Pain [None]
  - General physical health deterioration [None]
  - Abdominal pain [None]
  - Emotional distress [None]
  - Anxiety [None]
  - Pain [None]
  - Pulmonary embolism [Recovered/Resolved]
  - Pelvic venous thrombosis [None]
  - Vena cava thrombosis [None]
